FAERS Safety Report 23846804 (Version 6)
Quarter: 2024Q4

REPORT INFORMATION
  Report Type: Spontaneous
  Country: US (occurrence: US)
  Receive Date: 20240513
  Receipt Date: 20241226
  Transmission Date: 20250115
  Serious: Yes (Other)
  Sender: SANOFI AVENTIS
  Company Number: US-SA-SAC20240509000988

PATIENT
  Age: 35 Year
  Sex: Female

DRUGS (1)
  1. DUPIXENT [Suspect]
     Active Substance: DUPILUMAB
     Indication: Dermatitis atopic
     Dosage: 300 MG, QOW
     Route: 058
     Dates: start: 202404

REACTIONS (10)
  - Rectal haemorrhage [Unknown]
  - Sinus disorder [Unknown]
  - Procedural pain [Unknown]
  - Skin lesion [Unknown]
  - Restless legs syndrome [Unknown]
  - Pain [Unknown]
  - Fibromyalgia [Unknown]
  - Tension headache [Unknown]
  - Injection site pain [Unknown]
  - Surgery [Recovering/Resolving]

NARRATIVE: CASE EVENT DATE: 20240101
